FAERS Safety Report 5162426-0 (Version None)
Quarter: 2006Q4

REPORT INFORMATION
  Report Type: 
  Country: None (occurrence: None)
  Receive Date: 20061128
  Receipt Date: 20061128
  Transmission Date: 20070319
  Serious: Yes (Other)
  Sender: FDA-Public Use
  Company Number: None

PATIENT
  Age: 67 Year
  Sex: Male

DRUGS (3)
  1. PRAZOSIN HCL [Suspect]
     Indication: PROSTATITIS
     Dosage: 1 MG PO HS
     Route: 048
  2. ASPIRIN [Concomitant]
  3. HCTZ 25/TRIAM [Concomitant]

REACTIONS (2)
  - GALACTORRHOEA [None]
  - GYNAECOMASTIA [None]
